FAERS Safety Report 18817149 (Version 1)
Quarter: 2021Q1

REPORT INFORMATION
  Report Type: Spontaneous
  Country: US (occurrence: US)
  Receive Date: 20210201
  Receipt Date: 20210201
  Transmission Date: 20210419
  Serious: No
  Sender: FDA-Public Use
  Company Number: US-PFIZER INC-2021071797

PATIENT
  Age: 51 Year
  Sex: Male
  Weight: 83.9 kg

DRUGS (11)
  1. TRULICITY [Concomitant]
     Active Substance: DULAGLUTIDE
     Dosage: UNK (0.75MG/0.5 PEN INJCTR)
  2. IRON [Concomitant]
     Active Substance: IRON
     Dosage: UNK (159(45)MG TABLET ER)
  3. LISINOPRIL. [Concomitant]
     Active Substance: LISINOPRIL
     Dosage: 10 MG
  4. GLYBURIDE;METFORMIN HYDROCHLORIDE [Concomitant]
     Dosage: UNK
  5. SUTENT [Suspect]
     Active Substance: SUNITINIB MALATE
     Indication: GASTROINTESTINAL STROMAL TUMOUR
     Dosage: 50 MG, CYCLIC (DAILY FOR 4 WEEKS ON, 2 WEEKS OFF)
     Route: 048
     Dates: start: 20210113
  6. PRANDIN [Concomitant]
     Active Substance: REPAGLINIDE
     Dosage: 1 MG
  7. ACTOS [Concomitant]
     Active Substance: PIOGLITAZONE HYDROCHLORIDE
     Dosage: 15 MG
  8. PRILOSEC [Concomitant]
     Active Substance: OMEPRAZOLE MAGNESIUM
     Dosage: 20 MG
  9. FIBER [Concomitant]
     Active Substance: PSYLLIUM HUSK
     Dosage: 0.4 G
  10. PRAVASTATIN SODIUM. [Concomitant]
     Active Substance: PRAVASTATIN SODIUM
     Dosage: 10 MG
  11. METFORMIN [Concomitant]
     Active Substance: METFORMIN HYDROCHLORIDE
     Dosage: UNK

REACTIONS (4)
  - Weight decreased [Not Recovered/Not Resolved]
  - Flatulence [Not Recovered/Not Resolved]
  - Pigmentation disorder [Not Recovered/Not Resolved]
  - Fatigue [Not Recovered/Not Resolved]

NARRATIVE: CASE EVENT DATE: 202101
